FAERS Safety Report 7922315-2 (Version None)
Quarter: 2011Q4

REPORT INFORMATION
  Report Type: 
  Country: None (occurrence: None)
  Receive Date: 20111117
  Receipt Date: 20111108
  Transmission Date: 20120403
  Serious: Yes (Other)
  Sender: FDA-Public Use
  Company Number: US-ASTRAZENECA-2011SE51918

PATIENT
  Age: 61 Year
  Sex: Female
  Weight: 79.4 kg

DRUGS (4)
  1. TOPROL-XL [Suspect]
     Indication: HYPERTENSION
     Route: 048
  2. TOPROL-XL [Suspect]
     Route: 048
     Dates: start: 20100720
  3. LISINOPRIL [Concomitant]
     Indication: HYPERTENSION
  4. HYDROCHLOROTHIAZIDE [Concomitant]
     Indication: HYPERTENSION
     Route: 048
     Dates: start: 20100720

REACTIONS (5)
  - PELVIC DISCOMFORT [None]
  - CERVICAL DYSPLASIA [None]
  - ENDOMETRIAL HYPERTROPHY [None]
  - UTERINE HAEMORRHAGE [None]
  - HEADACHE [None]
